FAERS Safety Report 18887046 (Version 1)
Quarter: 2021Q1

REPORT INFORMATION
  Report Type: Spontaneous
  Country: CN (occurrence: CN)
  Receive Date: 20210212
  Receipt Date: 20210212
  Transmission Date: 20210420
  Serious: Yes (Other)
  Sender: FDA-Public Use
  Company Number: CN-BAXTER-2021BAX002793

PATIENT
  Age: 16 Year
  Sex: Male
  Weight: 57 kg

DRUGS (7)
  1. SEDESSA [CYTARABINE] [Suspect]
     Active Substance: CYTARABINE HYDROCHLORIDE
     Indication: ACUTE LYMPHOCYTIC LEUKAEMIA
     Dosage: COAD CHEMOTHERAPY; CYTARABINE 0.08 G + SODIUM CHLORIDE 1 ML
     Route: 058
     Dates: start: 20201221, end: 20201225
  2. ENDOXAN [Suspect]
     Active Substance: CYCLOPHOSPHAMIDE
     Indication: ACUTE LYMPHOCYTIC LEUKAEMIA
     Dosage: COAD CHEMOTHERAPY; ENDOXAN 0.975 G + SODIUM CHLORIDE 250 ML
     Route: 041
     Dates: start: 20201221, end: 20201221
  3. SIIKE (VINDESINE SULFATE) [Suspect]
     Active Substance: VINDESINE SULFATE
     Indication: ACUTE LYMPHOCYTIC LEUKAEMIA
     Dosage: COAD CHEMOTHERAPY; VINDESINE 4 MG + SODIUM CHLORIDE 20 ML
     Route: 040
     Dates: start: 20201221, end: 20201221
  4. 0.9% SODIUM CHLORIDE INJECTION [Suspect]
     Active Substance: SODIUM CHLORIDE
     Dosage: COAD CHEMOTHERAPY; CYTARABINE 0.08 G + SODIUM CHLORIDE 1 ML
     Route: 058
     Dates: start: 20201221, end: 20201225
  5. DEXAMETHASONE. [Suspect]
     Active Substance: DEXAMETHASONE
     Indication: ACUTE LYMPHOCYTIC LEUKAEMIA
     Dosage: COAD CHEMOTHERAPY
     Route: 065
  6. 0.9% SODIUM CHLORIDE INJECTION [Suspect]
     Active Substance: SODIUM CHLORIDE
     Indication: MEDICATION DILUTION
     Dosage: COAD CHEMOTHERAPY; ENDOXAN 0.975 G + SODIUM CHLORIDE 250 ML
     Route: 041
     Dates: start: 20201221, end: 20201221
  7. 0.9% SODIUM CHLORIDE INJECTION [Suspect]
     Active Substance: SODIUM CHLORIDE
     Dosage: COAD CHEMOTHERAPY; VINDESINE 4 MG + SODIUM CHLORIDE 20 ML
     Route: 040
     Dates: start: 20201221, end: 20201221

REACTIONS (1)
  - Myelosuppression [Recovering/Resolving]

NARRATIVE: CASE EVENT DATE: 20210104
